FAERS Safety Report 13559829 (Version 1)
Quarter: 2017Q2

REPORT INFORMATION
  Report Type: Report from Study
  Country: US (occurrence: US)
  Receive Date: 20170518
  Receipt Date: 20170518
  Transmission Date: 20170830
  Serious: Yes (Hospitalization, Other)
  Sender: FDA-Public Use
  Company Number: US-BRISTOL-MYERS SQUIBB COMPANY-BMS-2015-036869

PATIENT
  Age: 71 Year
  Sex: Female
  Weight: 69 kg

DRUGS (2)
  1. IPILIMUMAB [Suspect]
     Active Substance: IPILIMUMAB
     Indication: MALIGNANT MELANOMA
     Dosage: 3 MG/KG, QCYCLE
     Route: 042
     Dates: start: 20140325
  2. BEVACIZUMAB [Suspect]
     Active Substance: BEVACIZUMAB
     Indication: MALIGNANT MELANOMA
     Dosage: 15 MG/KG, QCYCLE
     Route: 042
     Dates: start: 20140325

REACTIONS (11)
  - Headache [Unknown]
  - Amylase increased [Unknown]
  - Cholecystitis [Unknown]
  - Vomiting [Recovering/Resolving]
  - Alanine aminotransferase increased [Unknown]
  - Anaemia [Unknown]
  - Blood alkaline phosphatase increased [Unknown]
  - Abdominal pain upper [Unknown]
  - Fatigue [Unknown]
  - Chronic kidney disease [Recovering/Resolving]
  - Aspartate aminotransferase increased [Unknown]

NARRATIVE: CASE EVENT DATE: 20140617
